FAERS Safety Report 11032742 (Version 1)
Quarter: 2015Q2

REPORT INFORMATION
  Report Type: Spontaneous
  Country: US (occurrence: US)
  Receive Date: 20150415
  Receipt Date: 20150415
  Transmission Date: 20150821
  Serious: Yes (Hospitalization, Other)
  Sender: FDA-Public Use
  Company Number: US-GILEAD-2015-0148206

PATIENT
  Sex: Female

DRUGS (1)
  1. ZYDELIG [Suspect]
     Active Substance: IDELALISIB
     Indication: PRODUCT USED FOR UNKNOWN INDICATION
     Dosage: UNK
     Route: 065
     Dates: end: 20150314

REACTIONS (5)
  - Dialysis [Unknown]
  - Lung infection [Unknown]
  - Lower respiratory tract inflammation [Unknown]
  - Aphagia [Unknown]
  - Sepsis [Unknown]

NARRATIVE: CASE EVENT DATE: 20150309
